FAERS Safety Report 12839861 (Version 1)
Quarter: 2016Q4

REPORT INFORMATION
  Report Type: Spontaneous
  Country: DE (occurrence: DE)
  Receive Date: 20161012
  Receipt Date: 20161012
  Transmission Date: 20170207
  Serious: Yes (Other)
  Sender: FDA-Public Use
  Company Number: DE-PFIZER INC-2016465823

PATIENT
  Sex: Male

DRUGS (5)
  1. VITAMIN D [Concomitant]
     Active Substance: CHOLECALCIFEROL
     Indication: PROPHYLAXIS
     Dosage: UNK
  2. SIMVASTATIN. [Suspect]
     Active Substance: SIMVASTATIN
     Dosage: 10-40 MG, UNK
     Route: 048
     Dates: start: 2001
  3. ROSUVASTATIN. [Suspect]
     Active Substance: ROSUVASTATIN
     Indication: LOW DENSITY LIPOPROTEIN INCREASED
     Dosage: 10 MG, UNK
     Route: 048
     Dates: start: 2015, end: 2015
  4. LOVASTATIN. [Suspect]
     Active Substance: LOVASTATIN
     Indication: LOW DENSITY LIPOPROTEIN INCREASED
     Dosage: 20-40 MG, UNK
     Route: 048
     Dates: start: 2001
  5. ATORVASTATIN CALCIUM. [Suspect]
     Active Substance: ATORVASTATIN CALCIUM
     Indication: LOW DENSITY LIPOPROTEIN INCREASED
     Dosage: UNK
     Route: 048
     Dates: start: 20160524, end: 201609

REACTIONS (6)
  - Musculoskeletal discomfort [Recovering/Resolving]
  - Myopathy [Recovering/Resolving]
  - Transaminases increased [Recovering/Resolving]
  - Hypoaesthesia [Recovering/Resolving]
  - Blood creatine phosphokinase increased [Recovering/Resolving]
  - Polyneuropathy [Recovering/Resolving]

NARRATIVE: CASE EVENT DATE: 2003
